FAERS Safety Report 19783261 (Version 1)
Quarter: 2021Q3

REPORT INFORMATION
  Report Type: Spontaneous
  Country: CN (occurrence: CN)
  Receive Date: 20210903
  Receipt Date: 20210903
  Transmission Date: 20211014
  Serious: Yes (Hospitalization, Other)
  Sender: FDA-Public Use
  Company Number: CN-009507513-2108CHN007349

PATIENT
  Age: 53 Year
  Sex: Female
  Weight: 57 kg

DRUGS (6)
  1. GLUTATHIONE [Concomitant]
     Active Substance: GLUTATHIONE
     Indication: SEPSIS
     Dosage: 1.2 G, QD
     Route: 041
     Dates: start: 20210807, end: 20210822
  2. STERILE WATER [Concomitant]
     Active Substance: WATER
     Dosage: 3 G, BID
     Dates: start: 20210807, end: 20210822
  3. TIENAM [Suspect]
     Active Substance: CILASTATIN SODIUM\IMIPENEM
     Indication: SEPSIS
     Dosage: 1 G, BID
     Route: 041
     Dates: start: 20210807, end: 20210809
  4. SODIUM CHLORIDE. [Concomitant]
     Active Substance: SODIUM CHLORIDE
     Dosage: 100 ML, BID
     Route: 041
     Dates: start: 20210807, end: 20210822
  5. AMBROXOL HYDROCHLORIDE [Concomitant]
     Active Substance: AMBROXOL HYDROCHLORIDE
     Indication: PNEUMONIA
     Dosage: 60 MG, QD
     Route: 041
     Dates: start: 20210807, end: 20210817
  6. ACETYLCYSTEINE. [Concomitant]
     Active Substance: ACETYLCYSTEINE
     Indication: PNEUMONIA
     Dosage: 0.3 G, BID
     Dates: start: 20210807, end: 20210822

REACTIONS (3)
  - Epilepsy [Recovering/Resolving]
  - Product use issue [Unknown]
  - Epilepsy [Recovering/Resolving]

NARRATIVE: CASE EVENT DATE: 20210807
